FAERS Safety Report 9412151 (Version 1)
Quarter: 2013Q3

REPORT INFORMATION
  Report Type: Spontaneous
  Country: US (occurrence: US)
  Receive Date: 20130722
  Receipt Date: 20130722
  Transmission Date: 20140515
  Serious: Yes (Other)
  Sender: FDA-Public Use
  Company Number: US-NOVOPROD-383156

PATIENT
  Age: 68 Year
  Sex: Female

DRUGS (7)
  1. VICTOZA [Suspect]
     Indication: TYPE 2 DIABETES MELLITUS
     Dosage: 1.2 MG, QD
     Route: 058
  2. PRANDIN? [Concomitant]
     Indication: TYPE 2 DIABETES MELLITUS
     Dosage: 1 MG, TID
     Route: 048
  3. LANTUS [Concomitant]
     Indication: TYPE 2 DIABETES MELLITUS
     Dosage: 20 U, BID
     Route: 058
  4. JANUVIA [Concomitant]
     Indication: TYPE 2 DIABETES MELLITUS
  5. METFORMIN [Concomitant]
     Indication: TYPE 2 DIABETES MELLITUS
     Dosage: 500 MG, BID
  6. PRECOSE [Concomitant]
     Indication: TYPE 2 DIABETES MELLITUS
     Dosage: 25 MG, TID
  7. ANTIHYPERTENSIVES [Concomitant]
     Indication: HYPERTENSION

REACTIONS (3)
  - Pancreatic mass [Unknown]
  - Pancreatic duct dilatation [Unknown]
  - Hepatic lesion [Unknown]
